FAERS Safety Report 23043806 (Version 1)
Quarter: 2023Q4

REPORT INFORMATION
  Report Type: Other
  Country: GB (occurrence: GB)
  Receive Date: 20231009
  Receipt Date: 20231009
  Transmission Date: 20240109
  Serious: Yes (Disabling)
  Sender: FDA-Public Use
  Company Number: None

PATIENT
  Sex: Female

DRUGS (1)
  1. SERTRALINE [Suspect]
     Active Substance: SERTRALINE HYDROCHLORIDE
     Indication: Product used for unknown indication
     Dosage: UNK
     Route: 065

REACTIONS (6)
  - Temporomandibular joint syndrome [Not Recovered/Not Resolved]
  - Injury [Not Recovered/Not Resolved]
  - Bruxism [Not Recovered/Not Resolved]
  - Trismus [Recovered/Resolved with Sequelae]
  - Depression [Recovered/Resolved with Sequelae]
  - Nausea [Recovered/Resolved]
